FAERS Safety Report 8347914-8 (Version None)
Quarter: 2012Q2

REPORT INFORMATION
  Report Type: 
  Country: None (occurrence: None)
  Receive Date: 20120509
  Receipt Date: 20120424
  Transmission Date: 20120825
  Serious: Yes (Hospitalization, Other)
  Sender: FDA-Public Use
  Company Number: US-WATSON-2012-07112

PATIENT
  Sex: Female
  Weight: 62.585 kg

DRUGS (2)
  1. MICROGESTIN FE 1.5/30 [Suspect]
     Indication: ORAL CONTRACEPTION
     Dosage: 1 TAB EVERY DAY
     Route: 048
     Dates: start: 19990101, end: 20110713
  2. TENERETIC [Concomitant]
     Indication: BLOOD PRESSURE
     Dosage: UNK
     Route: 065
     Dates: start: 20070101

REACTIONS (4)
  - HEPATIC ADENOMA [None]
  - HEPATIC HAEMORRHAGE [None]
  - RESPIRATORY FAILURE [None]
  - RENAL FAILURE [None]
